FAERS Safety Report 20431194 (Version 1)
Quarter: 2022Q1

REPORT INFORMATION
  Report Type: Spontaneous
  Country: US (occurrence: None)
  Receive Date: 20220203
  Receipt Date: 20220203
  Transmission Date: 20220423
  Serious: No
  Sender: FDA-Public Use
  Company Number: None

PATIENT
  Sex: Female

DRUGS (1)
  1. OTEZLA [Suspect]
     Active Substance: APREMILAST
     Indication: Psoriasis
     Dosage: FREQUENCY : TOTAL;?
     Route: 048
     Dates: start: 20200716, end: 20211022

REACTIONS (3)
  - Drug ineffective [None]
  - Insurance issue [None]
  - Condition aggravated [None]
